FAERS Safety Report 13456620 (Version 1)
Quarter: 2017Q2

REPORT INFORMATION
  Report Type: Spontaneous
  Country: US (occurrence: US)
  Receive Date: 20170418
  Receipt Date: 20170418
  Transmission Date: 20170830
  Serious: No
  Sender: FDA-Public Use
  Company Number: US-SEBELA IRELAND LIMITED-2016SEB01466

PATIENT
  Age: 39 Year
  Sex: Female

DRUGS (4)
  1. NORTHERA [Suspect]
     Active Substance: DROXIDOPA
     Dosage: 300 MG, 3X/DAY
     Dates: start: 20160704
  2. NORTHERA [Suspect]
     Active Substance: DROXIDOPA
     Dosage: 200 MG, 3X/DAY
     Dates: start: 20160708
  3. IMURAN [Suspect]
     Active Substance: AZATHIOPRINE
     Indication: MYASTHENIA GRAVIS
     Dosage: UNK
  4. IMURAN [Suspect]
     Active Substance: AZATHIOPRINE
     Dosage: UNK
     Dates: start: 20160801

REACTIONS (3)
  - Neck pain [Unknown]
  - Mobility decreased [Unknown]
  - Abdominal pain upper [Unknown]

NARRATIVE: CASE EVENT DATE: 2016
